FAERS Safety Report 5048470-2 (Version None)
Quarter: 2006Q3

REPORT INFORMATION
  Report Type: 
  Country: None (occurrence: None)
  Receive Date: 20060712
  Receipt Date: 20060630
  Transmission Date: 20061208
  Serious: Yes (Hospitalization)
  Sender: FDA-Public Use
  Company Number: US-JNJFOC-20060403705

PATIENT
  Sex: Female
  Weight: 78.47 kg

DRUGS (24)
  1. REMICADE [Suspect]
     Route: 042
  2. REMICADE [Suspect]
     Indication: RHEUMATOID ARTHRITIS
     Route: 042
  3. LIPITOR [Concomitant]
  4. WATER PILL [Concomitant]
  5. BENECAR [Concomitant]
  6. SULFADIAZINE [Concomitant]
  7. BUMEX [Concomitant]
     Indication: DIURETIC THERAPY
  8. ACTENOL [Concomitant]
  9. POTASSIUM [Concomitant]
  10. MAGNESIUM [Concomitant]
  11. ADVAIR DISKUS 100/50 [Concomitant]
  12. ATENOLOL [Concomitant]
  13. HYDRALAZINE HCL [Concomitant]
  14. SULFASALAZINE [Concomitant]
  15. HYDROCHLOROTHIAZIDE [Concomitant]
  16. FLEXERIL [Concomitant]
  17. TEMAZEPAM [Concomitant]
  18. HYDA/APPA [Concomitant]
  19. VITAMIN E [Concomitant]
  20. ASPIRIN [Concomitant]
  21. POTASSIUM CHLORIDE [Concomitant]
  22. NIACIN [Concomitant]
  23. AZMACORT [Concomitant]
  24. SEREVENT [Concomitant]

REACTIONS (9)
  - BRONCHITIS [None]
  - BURSITIS [None]
  - CHRONIC OBSTRUCTIVE PULMONARY DISEASE [None]
  - CORONARY ARTERY DISEASE [None]
  - EPICONDYLITIS [None]
  - NEUROPATHY PERIPHERAL [None]
  - PLEURAL EFFUSION [None]
  - SKIN DISORDER [None]
  - URINARY TRACT INFECTION [None]
